FAERS Safety Report 6108232-1 (Version None)
Quarter: 2009Q1

REPORT INFORMATION
  Report Type: 
  Country: None (occurrence: None)
  Receive Date: 20090304
  Receipt Date: 20080701
  Transmission Date: 20090719
  Serious: Yes (Other)
  Sender: FDA-Public Use
  Company Number: US-001282

PATIENT
  Age: 88 Year
  Sex: Male

DRUGS (2)
  1. ISOVUE-300 [Suspect]
     Indication: HAEMATURIA
     Dosage: 100ML QD INTRAVENOUS (NOT OTHERWISE SPECIFIED)
     Route: 042
     Dates: start: 20080630, end: 20080630
  2. ISOVUE-300 [Suspect]
     Indication: UROGRAM
     Dosage: 100ML QD INTRAVENOUS (NOT OTHERWISE SPECIFIED)
     Route: 042
     Dates: start: 20080630, end: 20080630

REACTIONS (1)
  - ANAPHYLACTOID REACTION [None]
